FAERS Safety Report 10528915 (Version 2)
Quarter: 2014Q4

REPORT INFORMATION
  Report Type: Spontaneous
  Country: US (occurrence: US)
  Receive Date: 20141020
  Receipt Date: 20141121
  Transmission Date: 20150528
  Serious: No
  Sender: FDA-Public Use
  Company Number: US-PFIZER INC-2014286022

PATIENT
  Age: 46 Year
  Sex: Female
  Weight: 79.4 kg

DRUGS (4)
  1. LEVOXYL [Suspect]
     Active Substance: LEVOTHYROXINE SODIUM
     Indication: HORMONE SUPPRESSION THERAPY
     Dosage: 175 ?G, UNK
     Route: 048
     Dates: start: 1999
  2. LEVOXYL [Suspect]
     Active Substance: LEVOTHYROXINE SODIUM
     Dosage: 175 ?G, DAILY
     Route: 048
     Dates: start: 20100806
  3. LEVOXYL [Suspect]
     Active Substance: LEVOTHYROXINE SODIUM
     Dosage: 250 ?G, DAILY
     Route: 048
  4. LEVOXYL [Suspect]
     Active Substance: LEVOTHYROXINE SODIUM
     Dosage: 224 ?G, DAILY
     Route: 048

REACTIONS (1)
  - Toxicity to various agents [Unknown]

NARRATIVE: CASE EVENT DATE: 2010
